FAERS Safety Report 21231001 (Version 1)
Quarter: 2022Q3

REPORT INFORMATION
  Report Type: Spontaneous
  Country: US (occurrence: None)
  Receive Date: 20220819
  Receipt Date: 20220819
  Transmission Date: 20221027
  Serious: Yes (Life-Threatening, Hospitalization, Other)
  Sender: FDA-Public Use
  Company Number: US-MLMSERVICE-20220804-3719818-1

PATIENT
  Age: 17 Year
  Sex: Female
  Weight: 103 kg

DRUGS (9)
  1. NOREPINEPHRINE [Suspect]
     Active Substance: NOREPINEPHRINE
     Indication: Hypotension
     Dosage: HIGH-DOSE
     Route: 065
     Dates: start: 202107
  2. EPINEPHRINE [Suspect]
     Active Substance: EPINEPHRINE
     Indication: Hypotension
     Dosage: HIGH-DOSE
     Route: 065
     Dates: start: 202107
  3. INSULIN NOS [Suspect]
     Active Substance: INSULIN NOS
     Indication: Hypotension
     Dosage: 0.1 U/KG/H
     Route: 065
     Dates: start: 202107
  4. VASOPRESSIN [Suspect]
     Active Substance: VASOPRESSIN
     Indication: Hypotension
     Dosage: UNKNOWN
     Route: 065
     Dates: start: 202107
  5. IBUPROFEN [Concomitant]
     Active Substance: IBUPROFEN
     Indication: Product used for unknown indication
     Dosage: UNKNOWN
     Route: 065
     Dates: start: 202107
  6. ACETAMINOPHEN [Concomitant]
     Active Substance: ACETAMINOPHEN
     Indication: Product used for unknown indication
     Dosage: UNKNOWN
     Route: 065
     Dates: start: 202107
  7. AMOXICILLIN [Concomitant]
     Active Substance: AMOXICILLIN
     Indication: Product used for unknown indication
     Dosage: UNKNOWN
     Route: 065
     Dates: start: 202107
  8. CALCIUM [Concomitant]
     Active Substance: CALCIUM
     Indication: Hypotension
     Dosage: UNKNOWN
     Route: 065
     Dates: start: 202107
  9. AMLODIPINE [Concomitant]
     Active Substance: AMLODIPINE BESYLATE
     Indication: Product used for unknown indication
     Dosage: 500 TO 550 MG
     Route: 065
     Dates: start: 202107

REACTIONS (4)
  - Hypervolaemia [Recovering/Resolving]
  - Pulmonary oedema [Recovering/Resolving]
  - Product preparation issue [Recovering/Resolving]
  - Product administration error [Recovering/Resolving]

NARRATIVE: CASE EVENT DATE: 20210701
